FAERS Safety Report 6208075-4 (Version None)
Quarter: 2009Q2

REPORT INFORMATION
  Report Type: 
  Country: None (occurrence: None)
  Receive Date: 20090529
  Receipt Date: 20090409
  Transmission Date: 20091009
  Serious: No
  Sender: FDA-Public Use
  Company Number: US-KINGPHARMUSA00001-K200900412

PATIENT
  Sex: Female
  Weight: 78.005 kg

DRUGS (2)
  1. FLECTOR [Suspect]
     Indication: ARTHRITIS
     Dosage: 1 PATCH, BID
     Route: 061
     Dates: start: 20090301
  2. FLECTOR [Suspect]
     Indication: HIP SWELLING

REACTIONS (3)
  - ERYTHEMA [None]
  - HIP SWELLING [None]
  - HYPERSENSITIVITY [None]
